FAERS Safety Report 14454995 (Version 1)
Quarter: 2018Q1

REPORT INFORMATION
  Report Type: Spontaneous
  Country: US (occurrence: US)
  Receive Date: 20180129
  Receipt Date: 20180129
  Transmission Date: 20180509
  Serious: Yes (Other)
  Sender: FDA-Public Use
  Company Number: US-DSJP-DSU-2017-142933

PATIENT

DRUGS (2)
  1. BENICAR [Suspect]
     Active Substance: OLMESARTAN MEDOXOMIL
     Indication: BLOOD PRESSURE MANAGEMENT
     Dosage: 5 MG, UNK
     Dates: start: 20110228, end: 20170902
  2. BENICAR [Suspect]
     Active Substance: OLMESARTAN MEDOXOMIL
     Dosage: 20 MG, QD
     Dates: start: 20110228, end: 20170902

REACTIONS (3)
  - Sprue-like enteropathy [Recovering/Resolving]
  - Chronic kidney disease [Unknown]
  - Drug administration error [Unknown]

NARRATIVE: CASE EVENT DATE: 20110228
